FAERS Safety Report 8468631 (Version 9)
Quarter: 2014Q1

REPORT INFORMATION
  Report Type: Spontaneous
  Country: US (occurrence: US)
  Receive Date: 20120320
  Receipt Date: 20140124
  Transmission Date: 20141002
  Serious: Yes (Hospitalization, Other)
  Sender: FDA-Public Use
  Company Number: US-ASTRAZENECA-2012SE16854

PATIENT
  Age: 21112 Day
  Sex: Female
  Weight: 83 kg

DRUGS (98)
  1. NEXIUM [Suspect]
     Indication: GASTROOESOPHAGEAL REFLUX DISEASE
     Route: 048
     Dates: start: 2009, end: 2011
  2. NEXIUM [Suspect]
     Indication: CHEST PAIN
     Route: 048
     Dates: start: 2009, end: 2011
  3. NEXIUM [Suspect]
     Indication: GASTROOESOPHAGEAL REFLUX DISEASE
     Route: 048
     Dates: start: 20090428
  4. NEXIUM [Suspect]
     Indication: CHEST PAIN
     Route: 048
     Dates: start: 20090428
  5. NEXIUM [Suspect]
     Indication: GASTROOESOPHAGEAL REFLUX DISEASE
     Route: 048
     Dates: start: 20090519
  6. NEXIUM [Suspect]
     Indication: CHEST PAIN
     Route: 048
     Dates: start: 20090519
  7. NEXIUM [Suspect]
     Indication: GASTROOESOPHAGEAL REFLUX DISEASE
     Route: 048
     Dates: start: 20100902
  8. NEXIUM [Suspect]
     Indication: CHEST PAIN
     Route: 048
     Dates: start: 20100902
  9. NEXIUM [Suspect]
     Indication: GASTROOESOPHAGEAL REFLUX DISEASE
     Route: 048
     Dates: start: 2011
  10. NEXIUM [Suspect]
     Indication: CHEST PAIN
     Route: 048
     Dates: start: 2011
  11. NEXIUM [Suspect]
     Indication: GASTROOESOPHAGEAL REFLUX DISEASE
     Route: 048
     Dates: start: 20111010
  12. NEXIUM [Suspect]
     Indication: CHEST PAIN
     Route: 048
     Dates: start: 20111010
  13. NEXIUM [Suspect]
     Indication: GASTROOESOPHAGEAL REFLUX DISEASE
     Route: 048
     Dates: start: 20111024
  14. NEXIUM [Suspect]
     Indication: CHEST PAIN
     Route: 048
     Dates: start: 20111024
  15. ROLAIDS [Concomitant]
  16. VITAMIN E [Concomitant]
     Dosage: 1000 UNIT 3 PILLS DAILY
  17. POTASSIUM [Concomitant]
     Route: 048
  18. ATENOLOL [Concomitant]
     Indication: HYPERTENSIVE HEART DISEASE
     Dates: start: 20070820
  19. ATENOLOL [Concomitant]
     Indication: HYPERTENSION
     Dates: start: 20070820
  20. ATENOLOL [Concomitant]
     Indication: HYPERTENSIVE HEART DISEASE
  21. ATENOLOL [Concomitant]
     Indication: HYPERTENSION
  22. ATENOLOL [Concomitant]
     Indication: HYPERTENSIVE HEART DISEASE
     Dates: start: 20090407
  23. ATENOLOL [Concomitant]
     Indication: HYPERTENSION
     Dates: start: 20090407
  24. ATENOLOL [Concomitant]
     Indication: HYPERTENSIVE HEART DISEASE
     Dates: start: 20100902
  25. ATENOLOL [Concomitant]
     Indication: HYPERTENSION
     Dates: start: 20100902
  26. ATENOLOL [Concomitant]
     Indication: HYPERTENSIVE HEART DISEASE
     Route: 048
     Dates: start: 20111010
  27. ATENOLOL [Concomitant]
     Indication: HYPERTENSION
     Route: 048
     Dates: start: 20111010
  28. SIMVASTATION [Concomitant]
     Indication: HYPERLIPIDAEMIA
     Dates: start: 2010
  29. SIMVASTATION [Concomitant]
     Indication: HYPERLIPIDAEMIA
     Dates: start: 20100215
  30. SIMVASTATION [Concomitant]
     Indication: HYPERLIPIDAEMIA
     Dosage: 40 MG 1 TABLET EVERY EVENING ORALLY ONCE A DAY
     Route: 048
     Dates: start: 20101010
  31. ASPIRIN [Concomitant]
     Indication: CHEST PAIN
     Route: 048
     Dates: start: 20070820
  32. ASPIRIN [Concomitant]
     Indication: CHEST PAIN
     Dates: start: 20100215
  33. ASPIRIN [Concomitant]
     Indication: CHEST PAIN
     Route: 048
     Dates: start: 20101010
  34. TYLENOL [Concomitant]
     Dosage: 2 30 500 MG AS DIRECTED
  35. TYLENOL [Concomitant]
     Dosage: PRN
     Dates: start: 20100215
  36. TYLENOL [Concomitant]
     Dosage: 325 MG 1 TABLET AS NEEDED ORALLY EVERY 6 HRS
     Route: 048
     Dates: start: 20111010
  37. ALBUTEROL SULFATE [Concomitant]
     Indication: ASTHMA
     Dosage: 0.083 PERCENT ML AS NEEDED
  38. ALBUTEROL SULFATE [Concomitant]
     Indication: ASTHMA
     Dosage: HFA 2 PUFFS QID
     Dates: start: 20100215
  39. ALBUTEROL SULFATE [Concomitant]
     Indication: ASTHMA
     Dosage: BY NEBULIZER 3 TO 4 TIMES A DAY
     Dates: start: 20100215
  40. ALBUTEROL SULFATE [Concomitant]
     Indication: ASTHMA
     Dosage: 108(90 BASE) MCG/ACT 2 PUFF INHALATION EVERY 6 HRS PRN
     Dates: start: 20111024
  41. ZYRTEC D [Concomitant]
     Indication: ASTHMA
     Dosage: 5-120 MG ONCE A DAY
     Dates: start: 20100902
  42. ZYRTEC D [Concomitant]
     Indication: MULTIPLE ALLERGIES
     Dosage: 5-120 MG ONCE A DAY
     Dates: start: 20100902
  43. ZYRTEC D [Concomitant]
     Indication: NASAL CONGESTION
     Dosage: 5-120 MG ONCE A DAY
     Dates: start: 20100902
  44. ZYRTEC D [Concomitant]
     Indication: ASTHMA
     Route: 048
     Dates: start: 20111010
  45. ZYRTEC D [Concomitant]
     Indication: MULTIPLE ALLERGIES
     Route: 048
     Dates: start: 20111010
  46. ZYRTEC D [Concomitant]
     Indication: NASAL CONGESTION
     Route: 048
     Dates: start: 20111010
  47. EXFORGE HCT [Concomitant]
     Indication: HYPERTENSIVE HEART DISEASE
     Dosage: 10-160-12.5MG ONCE A DAY
     Dates: start: 20100902
  48. EXFORGE HCT [Concomitant]
     Indication: HYPERTENSION
     Dosage: 10-160-12.5MG ONCE A DAY
     Dates: start: 20100902
  49. GLIMEPIRIDE [Concomitant]
     Indication: DIABETES MELLITUS
  50. GLIMEPIRIDE [Concomitant]
     Indication: DIABETES MELLITUS
     Dosage: 1MG 1TABLET WITH BREAKFAST OR THE FIRST MAIN MEAL OF THE DAY ORALLY ONCE A DAY
     Route: 048
     Dates: start: 20111010
  51. GLIMEPIRIDE [Concomitant]
     Indication: DIABETES MELLITUS
     Dosage: 1MG 1TABLET DAILY WITH BREAKFAST OR THE FIRST MAIN MEAL
     Route: 048
     Dates: start: 20111024
  52. MECLIZINE/ANTIVERT [Concomitant]
     Dates: start: 20111010
  53. ESTRADERM [Concomitant]
     Dates: start: 20081208
  54. ESTRADERM [Concomitant]
     Dosage: 0.05MG ONE 24-HOUR PATCH TO SKIN A DAY
     Dates: start: 20100902
  55. ZOFRAN ODT [Concomitant]
  56. CLONAZEPAM [Concomitant]
  57. IBUPROFEN/ADVIL [Concomitant]
     Dates: start: 20080826
  58. IBUPROFEN/ADVIL [Concomitant]
     Dosage: AS NEEDED
     Dates: start: 20100215
  59. IBUPROFEN/ADVIL [Concomitant]
     Dates: start: 20100902
  60. IBUPROFEN/ADVIL [Concomitant]
     Route: 048
     Dates: start: 20111010
  61. CITALOPRAM HBR [Concomitant]
     Dosage: 40 MG 1AND HALF TABLETS EVERY AM
     Dates: start: 20070820
  62. CITALOPRAM HBR [Concomitant]
     Dates: start: 20081128
  63. CITALOPRAM HBR [Concomitant]
     Dates: start: 20100215
  64. HYDROCODONE W/APAP [Concomitant]
     Dosage: 5/500
     Dates: start: 20081128
  65. LISINOPRIL [Concomitant]
     Dates: start: 20081205
  66. LISINOPRIL [Concomitant]
     Dates: start: 20090428
  67. LISINOPRIL [Concomitant]
     Dates: start: 20100215
  68. CARISOPRODOL [Concomitant]
     Dates: start: 20090203
  69. LEVAQUIN [Concomitant]
     Dates: start: 20080918
  70. FLUCONAZOLE [Concomitant]
     Dates: start: 20090212
  71. METRONIDAZOLE [Concomitant]
     Dates: start: 20090218
  72. NASONEX [Concomitant]
  73. NASONEX [Concomitant]
     Dosage: AS NEEDED
     Dates: start: 20100215
  74. BENADRYL [Concomitant]
     Dates: start: 20100902
  75. BENADRYL [Concomitant]
     Dates: start: 20100215
  76. BENADRYL [Concomitant]
     Dates: start: 20111010
  77. ADVAIR DISKUS [Concomitant]
     Indication: ASTHMA
     Dosage: 250-50 MCG/DOSE 1 EVERY 12 HOURS
     Dates: start: 20100902
  78. ALENDRONATE SODIUM [Concomitant]
     Dosage: 70 MG 1 TABLET ONCE A WEEK
     Dates: start: 20100902
  79. ALENDRONATE SODIUM [Concomitant]
     Dosage: 70 MG 1 TABLET ONCE Q WEEK
     Route: 048
     Dates: start: 20111010
  80. MAXAZIDE/TRIAMTEREN HCTZ [Concomitant]
     Indication: HYPERTENSIVE HEART DISEASE
     Dosage: 37.5/25 MG 1 HALF TABLET DAILY
     Dates: start: 20070820
  81. MAXAZIDE/TRIAMTEREN HCTZ [Concomitant]
     Indication: HYPERTENSION
     Dosage: 37.5/25 MG 1 HALF TABLET DAILY
     Dates: start: 20070820
  82. MAXAZIDE/TRIAMTEREN HCTZ [Concomitant]
     Indication: HYPERTENSIVE HEART DISEASE
     Dosage: 37.5 - 25 MG 1 TABLET IN THE MORNING ORALLY ONCE A DAY
     Dates: start: 20100215
  83. MAXAZIDE/TRIAMTEREN HCTZ [Concomitant]
     Indication: HYPERTENSION
     Dosage: 37.5 - 25 MG 1 TABLET IN THE MORNING ORALLY ONCE A DAY
     Dates: start: 20100215
  84. EXFORGE [Concomitant]
     Indication: HYPERTENSION
     Dates: start: 20100902
  85. CIPRO  HC [Concomitant]
  86. CALCIUM CALTRATE [Concomitant]
     Dosage: 600 DAILY
     Dates: start: 20100215
  87. VITAMIN C [Concomitant]
     Dosage: ONCE A DAY
     Dates: start: 20100215
  88. PRAVASTATIN SODIUM TABLET [Concomitant]
     Indication: HYPERLIPIDAEMIA
  89. ZITHROMAX Z PAK [Concomitant]
     Dosage: 250 MG 2 TABLET ON THE FIRST DAY THEN ONE TABLET FOR 4 DAYS ORALLY ONCE A DAY
     Dates: start: 20111010
  90. SUDAFED [Concomitant]
     Route: 048
     Dates: start: 20111010
  91. POTASSIUM CHLORIDE [Concomitant]
     Route: 048
     Dates: start: 20111010
  92. CALCITRIOL [Concomitant]
     Route: 048
     Dates: start: 20111010
  93. FLEXERIL [Concomitant]
     Dates: start: 20070820
  94. TRAZADONE [Concomitant]
     Dates: start: 20070820
  95. FELODIPINE ER [Concomitant]
     Dates: start: 20070820
  96. CALTRATE [Concomitant]
     Dates: start: 20070820
  97. FOSAMAX [Concomitant]
     Dosage: 70 MG Q WEEK
     Dates: start: 20070820
  98. OMEPRAZOLE [Concomitant]
     Dates: start: 20130402

REACTIONS (32)
  - Transient ischaemic attack [Unknown]
  - Cerebrovascular accident [Unknown]
  - Urinary tract infection [Unknown]
  - Hypertension [Unknown]
  - Chest pain [Unknown]
  - Blood creatinine increased [Unknown]
  - Asthenia [Unknown]
  - Diabetes mellitus [Unknown]
  - Vomiting [Unknown]
  - Abdominal pain upper [Unknown]
  - Headache [Unknown]
  - Nausea [Unknown]
  - Osteoporosis [Unknown]
  - Foot fracture [Unknown]
  - Cardiac disorder [Unknown]
  - Migraine [Unknown]
  - Anxiety [Unknown]
  - Vitamin D deficiency [Unknown]
  - Osteoarthritis [Unknown]
  - Tricuspid valve disease [Unknown]
  - Angina pectoris [Unknown]
  - Bradycardia [Unknown]
  - Osteopenia [Unknown]
  - Tooth fracture [Unknown]
  - Lung disorder [Unknown]
  - Ear disorder [Unknown]
  - Effusion [Unknown]
  - Renal disorder [Unknown]
  - Multiple fractures [Unknown]
  - Depression [Unknown]
  - Vertigo [Unknown]
  - Dizziness [Unknown]
